FAERS Safety Report 4601293-8 (Version None)
Quarter: 2005Q1

REPORT INFORMATION
  Report Type: 
  Country: None (occurrence: None)
  Receive Date: 20050304
  Receipt Date: 20050225
  Transmission Date: 20050727
  Serious: Yes (Hospitalization)
  Sender: FDA-Public Use
  Company Number: KII-2005-0015341

PATIENT
  Age: 28 Year
  Sex: Female

DRUGS (4)
  1. OXYCONTIN [Suspect]
     Dosage: SEE TEXT, ORAL
     Route: 048
  2. LORTAB [Suspect]
     Dosage: SEE TEXT, ORAL
     Route: 048
  3. ASPIRIN [Suspect]
  4. ALCOHOL (ETHANOL) [Suspect]

REACTIONS (5)
  - DYSARTHRIA [None]
  - HYPOVENTILATION [None]
  - INTENTIONAL MISUSE [None]
  - MULTIPLE DRUG OVERDOSE [None]
  - SOMNOLENCE [None]
